FAERS Safety Report 5289180-6 (Version None)
Quarter: 2007Q1

REPORT INFORMATION
  Report Type: 
  Country: None (occurrence: None)
  Receive Date: 20070119
  Receipt Date: 20060804
  Transmission Date: 20070707
  Serious: Yes (Other)
  Sender: FDA-Public Use
  Company Number: BDI-008504

PATIENT
  Age: 24 Year
  Sex: Female
  Weight: 47.73 kg

DRUGS (2)
  1. PROHANCE [Suspect]
     Indication: HEADACHE
     Dosage: 10 ML ONCE IV
     Route: 042
     Dates: start: 20060803, end: 20060803
  2. PROHANCE [Suspect]
     Indication: NUCLEAR MAGNETIC RESONANCE IMAGING BRAIN
     Dosage: 10 ML ONCE IV
     Route: 042
     Dates: start: 20060803, end: 20060803

REACTIONS (1)
  - HYPERSENSITIVITY [None]
